APPROVED DRUG PRODUCT: FLUOXETINE HYDROCHLORIDE
Active Ingredient: FLUOXETINE HYDROCHLORIDE
Strength: EQ 10MG BASE
Dosage Form/Route: TABLET;ORAL
Application: A211444 | Product #001
Applicant: CHARTWELL RX SCIENCES LLC
Approved: Sep 13, 2022 | RLD: No | RS: No | Type: DISCN